FAERS Safety Report 9243128 (Version 2)
Quarter: 2013Q2

REPORT INFORMATION
  Report Type: Spontaneous
  Country: US (occurrence: US)
  Receive Date: 20130419
  Receipt Date: 20130605
  Transmission Date: 20140414
  Serious: Yes (Other)
  Sender: FDA-Public Use
  Company Number: US-ELI_LILLY_AND_COMPANY-US201212005460

PATIENT
  Sex: Female

DRUGS (3)
  1. FORTEO [Suspect]
     Indication: OSTEOPOROSIS
     Dosage: UNK, UNKNOWN
  2. FORTEO [Suspect]
     Dosage: UNK, QD
     Dates: start: 20120901
  3. FORTEO [Suspect]
     Dosage: UNK, QD
     Dates: start: 20121001

REACTIONS (6)
  - Femur fracture [Unknown]
  - Femur fracture [Unknown]
  - Injection site mass [Unknown]
  - Injection site pain [Unknown]
  - Pain in extremity [Unknown]
  - Gait disturbance [Unknown]
